FAERS Safety Report 23273817 (Version 1)
Quarter: 2023Q4

REPORT INFORMATION
  Report Type: Spontaneous
  Country: CN (occurrence: CN)
  Receive Date: 20231207
  Receipt Date: 20231207
  Transmission Date: 20240110
  Serious: Yes (Disabling, Other)
  Sender: FDA-Public Use
  Company Number: None

PATIENT
  Age: 84 Year
  Sex: Female
  Weight: 48 kg

DRUGS (4)
  1. MANNITOL [Suspect]
     Active Substance: MANNITOL
     Indication: Cerebral infarction
     Dosage: 125 ML, 3 TIMES DAILY (DOSAGE FORM: INJECTION)
     Route: 041
     Dates: start: 20231119, end: 20231123
  2. MANNITOL [Suspect]
     Active Substance: MANNITOL
     Indication: Reduction of increased intracranial pressure
  3. BUTYLPHTHALIDE [Suspect]
     Active Substance: BUTYLPHTHALIDE
     Indication: Cerebral infarction
     Dosage: 0.2 G THREE TIMES DAILY
     Route: 048
     Dates: start: 20231119, end: 20231124
  4. BUTYLPHTHALIDE [Suspect]
     Active Substance: BUTYLPHTHALIDE
     Indication: Collateral circulation

REACTIONS (4)
  - Renal failure [Recovering/Resolving]
  - Electrolyte imbalance [Recovering/Resolving]
  - Face oedema [Recovering/Resolving]
  - Peripheral swelling [Recovering/Resolving]

NARRATIVE: CASE EVENT DATE: 20231123
